FAERS Safety Report 21305420 (Version 2)
Quarter: 2022Q3

REPORT INFORMATION
  Report Type: Report from Study
  Country: IT (occurrence: IT)
  Receive Date: 20220908
  Receipt Date: 20220912
  Transmission Date: 20221027
  Serious: Yes (Hospitalization)
  Sender: FDA-Public Use
  Company Number: None

PATIENT
  Age: 13 Year
  Sex: Male
  Weight: 35 kg

DRUGS (1)
  1. RISPERDAL [Suspect]
     Active Substance: RISPERIDONE
     Indication: Psychomotor hyperactivity
     Dosage: PATIENT IN THERAPY WITH 0.75 MG DAILY. 15 MG WAS ADMINISTERED BY MISTAKE (THE NUROFEN`S DOSING SYRIN
     Route: 048
     Dates: start: 20220331, end: 20220331

REACTIONS (7)
  - Sopor [Recovered/Resolved]
  - Muscle rigidity [Recovered/Resolved]
  - Sinus tachycardia [Recovered/Resolved]
  - Tremor [Recovered/Resolved]
  - Dyskinesia [Recovered/Resolved]
  - Accidental overdose [Recovered/Resolved]
  - Medication error [Unknown]

NARRATIVE: CASE EVENT DATE: 20220331
